FAERS Safety Report 7070752-3 (Version None)
Quarter: 2010Q4

REPORT INFORMATION
  Report Type: 
  Country: None (occurrence: None)
  Receive Date: 20101029
  Receipt Date: 20100927
  Transmission Date: 20110411
  Serious: Yes (Hospitalization)
  Sender: FDA-Public Use
  Company Number: US-BAYER-201018620NA

PATIENT
  Sex: Female

DRUGS (3)
  1. YAZ [Suspect]
     Indication: PRODUCT USED FOR UNKNOWN INDICATION
     Route: 048
     Dates: start: 20070101, end: 20080101
  2. YASMIN [Suspect]
     Indication: PRODUCT USED FOR UNKNOWN INDICATION
     Route: 048
  3. ALEVE (CAPLET) [Concomitant]
     Indication: PAIN

REACTIONS (8)
  - ASCITES [None]
  - BLOOD URINE PRESENT [None]
  - CHLAMYDIAL INFECTION [None]
  - METRORRHAGIA [None]
  - NEPHROLITHIASIS [None]
  - OVARIAN DISORDER [None]
  - PAIN [None]
  - RENAL INJURY [None]
